FAERS Safety Report 7942703-8 (Version None)
Quarter: 2011Q4

REPORT INFORMATION
  Report Type: 
  Country: None (occurrence: None)
  Receive Date: 20111122
  Receipt Date: 20110719
  Transmission Date: 20120403
  Serious: Yes (Other)
  Sender: FDA-Public Use
  Company Number: PHHY2011US51628

PATIENT
  Age: 54 Year
  Sex: Male

DRUGS (5)
  1. TRAZODONE HCL [Concomitant]
  2. GILENYA [Suspect]
     Indication: MULTIPLE SCLEROSIS
     Dosage: 0.5 MG, QD, ORAL
     Route: 048
     Dates: start: 20110422, end: 20110610
  3. NEURONTIN [Concomitant]
  4. VICODIN [Concomitant]
  5. GABAPENTIN [Concomitant]

REACTIONS (3)
  - PAIN [None]
  - RASH [None]
  - HERPES ZOSTER [None]
